FAERS Safety Report 6838223-4 (Version None)
Quarter: 2010Q3

REPORT INFORMATION
  Report Type: 
  Country: None (occurrence: None)
  Receive Date: 20100713
  Receipt Date: 20070604
  Transmission Date: 20110219
  Serious: No
  Sender: FDA-Public Use
  Company Number: US-PFIZER INC-2007047369

PATIENT
  Sex: Female
  Weight: 100.9 kg

DRUGS (6)
  1. CHANTIX [Suspect]
     Indication: SMOKING CESSATION THERAPY
     Dates: start: 20070501
  2. RISPERIDONE [Concomitant]
  3. GEODON [Concomitant]
  4. CARDURA [Concomitant]
  5. KLONOPIN [Concomitant]
  6. LEVOXYL [Concomitant]

REACTIONS (2)
  - ABNORMAL DREAMS [None]
  - DECREASED APPETITE [None]
